FAERS Safety Report 6444329-4 (Version None)
Quarter: 2009Q4

REPORT INFORMATION
  Report Type: 
  Country: None (occurrence: None)
  Receive Date: 20091118
  Receipt Date: 20091113
  Transmission Date: 20100525
  Serious: Yes (Hospitalization)
  Sender: FDA-Public Use
  Company Number: PHHO2009DK10639

PATIENT
  Sex: Female
  Weight: 80 kg

DRUGS (1)
  1. CGS 20267 T30748+TAB [Suspect]
     Indication: BREAST CANCER
     Dosage: 2.5 MG, QD
     Route: 048
     Dates: start: 20051213

REACTIONS (5)
  - ARTHRALGIA [None]
  - CONCOMITANT DISEASE PROGRESSION [None]
  - HIP SURGERY [None]
  - JOINT DISLOCATION [None]
  - OSTEOARTHRITIS [None]
